FAERS Safety Report 14171681 (Version 1)
Quarter: 2017Q4

REPORT INFORMATION
  Report Type: Other
  Country: ES (occurrence: ES)
  Receive Date: 20171108
  Receipt Date: 20171108
  Transmission Date: 20180321
  Serious: No
  Sender: FDA-Public Use
  Company Number: ES-LEADING PHARMA-2033570

PATIENT

DRUGS (1)
  1. GLYCOPYRROLATE. [Suspect]
     Active Substance: GLYCOPYRROLATE

REACTIONS (1)
  - Pollakiuria [Unknown]
